FAERS Safety Report 9242957 (Version 1)
Quarter: 2013Q2

REPORT INFORMATION
  Report Type: Spontaneous
  Country: US (occurrence: US)
  Receive Date: 20130419
  Receipt Date: 20130419
  Transmission Date: 20140414
  Serious: No
  Sender: FDA-Public Use
  Company Number: US-BAYER-2013-044383

PATIENT
  Sex: 0

DRUGS (13)
  1. ALEVE CAPLET [Suspect]
     Indication: MIGRAINE
  2. BAYER GENUINE ASPIRIN ORIGINAL STRENGTH [Suspect]
     Indication: MIGRAINE
  3. TOPOMAX [Concomitant]
  4. NORTRIPTYLINE [Concomitant]
  5. MARIJUANA [Concomitant]
  6. NAPROXEN [Concomitant]
  7. COMPAZINE [Concomitant]
  8. TORADOL [Concomitant]
  9. IMITREX [Concomitant]
  10. IBUPROFEN [Concomitant]
  11. TYLENOL [PARACETAMOL] [Concomitant]
  12. MECLIZINE [Concomitant]
  13. RIZATRIPTAN [Concomitant]

REACTIONS (1)
  - Drug ineffective [None]
